FAERS Safety Report 11615430 (Version 1)
Quarter: 2015Q4

REPORT INFORMATION
  Report Type: Spontaneous
  Country: CO (occurrence: CO)
  Receive Date: 20151009
  Receipt Date: 20151009
  Transmission Date: 20160304
  Serious: Yes (Other)
  Sender: FDA-Public Use
  Company Number: CO-JNJFOC-20151001149

PATIENT
  Age: 35 Year
  Sex: Male
  Weight: 70 kg

DRUGS (1)
  1. STELARA [Suspect]
     Active Substance: USTEKINUMAB
     Indication: PSORIASIS
     Dosage: WEEK 0, WEEK 4 AND MAINTAINANCE EVERY 12 WEEKS
     Route: 058
     Dates: start: 20150831

REACTIONS (4)
  - Fall [Recovered/Resolved with Sequelae]
  - Wound [Recovered/Resolved with Sequelae]
  - Foot fracture [Recovered/Resolved with Sequelae]
  - Accident at work [Recovered/Resolved with Sequelae]

NARRATIVE: CASE EVENT DATE: 20150901
